FAERS Safety Report 6836671-X (Version None)
Quarter: 2010Q3

REPORT INFORMATION
  Report Type: 
  Country: None (occurrence: None)
  Receive Date: 20100713
  Receipt Date: 20100629
  Transmission Date: 20110219
  Serious: Yes (Other)
  Sender: FDA-Public Use
  Company Number: PHHY2010US38411

PATIENT
  Sex: Male
  Weight: 105 kg

DRUGS (35)
  1. EXJADE [Suspect]
     Indication: HAEMOCHROMATOSIS
     Dosage: 500 MG, TID
     Route: 048
     Dates: start: 20100504, end: 20100530
  2. ANTIHYPERTENSIVE DRUGS [Concomitant]
     Indication: HYPERTENSION
     Dosage: UNK
  3. MIRALAX OR POWD [Concomitant]
     Dosage: 17 G, QD
     Route: 048
  4. NEOMYCIN-BACITRACIN POLYMYXIN EX CREA [Concomitant]
     Dosage: APPLY ONCE DAILY TO THE AFFECTED AREA FOR ONE WEEK
     Route: 061
  5. ANDROGEL 1% TD GEL [Concomitant]
     Dosage: APLLY 1 APPLICATION EXTERNALLY ONCE DAILY
     Route: 061
  6. INSULIN SYANGEN (DIASPOSABLE) U 100 0.5 ML XX MISC [Concomitant]
     Dosage: BEFORE MEALS PER SILVING SCALE, PLEASE DISPENSE BLAND NEEDLES
  7. LANTUS [Concomitant]
     Dosage: 100 U/ML 10 ML VIAL 100 UNITS/ML SC SOLTN INJECT INTO THE SKIN AT BEDTIME, INJECT 5 UNITS SC QNS
     Route: 058
  8. GLUCOSE BLOOD (ONE TOUCH TEST DTRIPS) VISTRO [Concomitant]
     Dosage: ONE STRIP BY IN VITRO ROUTE THREE TIMES DAILY WITH MEALS
  9. PAXL [Concomitant]
     Dosage: 20 MG TABS
  10. MULTIVITAMINS CAPS [Concomitant]
     Dosage: TAKE BY MOUTH
     Route: 048
  11. MLX THISTLE [Concomitant]
     Dosage: 20 MG CAPS TAKE BY MOUTH THREE TIMES A DAY
     Route: 048
  12. XANAX [Concomitant]
     Dosage: 2 MG, BID
     Route: 048
  13. SPNO VORO CHAMBER MOUTH PIECE MISC [Concomitant]
     Dosage: TO USE WITH INHALER
  14. PROTONIX 40 MG TOEC [Concomitant]
     Dosage: 1 TAB BY MOUTH QD
     Route: 048
  15. PERCOCET [Concomitant]
     Dosage: TAKE 1 TAB BY MOUTH ONCE DAILY
     Route: 048
  16. HIAC ANTIFUNGAL COMBO PRODUCTS [Concomitant]
     Route: 061
  17. ALDACTONE [Concomitant]
     Dosage: TAKE 1 TAB BY MOUTH ONCE DAILY
     Route: 048
  18. SENNA S [Concomitant]
     Dosage: 8.8 60 MG TABS, TAKE BY MOUTH ONCE DAILT, TAKER 2 TABSS PER ORAL DAILY
  19. ADVAIR DISKUS 100/50 [Concomitant]
     Dosage: INHALE 1 INHALATION BY MOUTH TWICE DAILY
     Route: 048
  20. ASPIRIN [Concomitant]
     Dosage: TAKE 1 TAB BY MOUTH ONCE DAILY
  21. HUMALOG [Concomitant]
     Dosage: INJECT INTO THE SKIN BEFOR MEALS PER SLIDING SEALN
  22. COLACE [Concomitant]
     Dosage: TAKE 100 MG CAPS BY MOUTH TWICE DAILY
     Route: 048
  23. PROVENTIL [Concomitant]
     Indication: WHEEZING
     Dosage: INHALE 2 PUFFS BY MOUTH EVERY 4 HOURS AS NEEDED FOR WHEEZING
  24. SYNTHROID [Concomitant]
     Dosage: TAKE 1 TAB BY MOUTH ONCE DAILY
     Route: 048
  25. REGLAN [Concomitant]
     Indication: PROPHYLAXIS OF NAUSEA AND VOMITING
     Dosage: TAKE 1 TAB BY MOUTH THREE TIMES A DAY AS NEEDED FOR NAUSEA/VOMITING
  26. AMBIEN [Concomitant]
     Indication: INSOMNIA
     Dosage: TAKE 1 TAB BY MOUTH AT BEDTIME AS NEEDED FOR SLEEPLESSNESS
  27. POTASSIUM CHLORIDE 10 MHQ BCR [Concomitant]
     Dosage: TAKE 1 TAB BY MOUTH TWICE DAILY
     Route: 048
  28. MYCOLOG-II [Concomitant]
     Dosage: APPLY ONE APPLICATION EXTERNALLY TWICE DAILY
     Route: 061
  29. SOMA [Concomitant]
     Indication: MUSCLE SPASMS
     Dosage: TAKE 1 TAB BY MOUTH EVERY 8 HOURS
  30. LIDODERM [Concomitant]
     Dosage: PLACE 1 PATCH ONT THE SKIN ONCE DAILY
  31. TOPROL-XL [Concomitant]
     Dosage: TAKE 1 TAB BY MOUTH ONCE DAILY
     Route: 048
  32. LASIX [Concomitant]
     Dosage: TAKE 1.5 TABS BY MOUTH ONCE DAILY
     Route: 048
  33. DEXILENS 60 MG CPDR [Concomitant]
     Dosage: TAKE 1 CAP BY MOUTH EVERY MORNING BEFORE BREAKFAST
     Route: 048
  34. DEXLANSOPRAZOLE 30 MG CPDR [Concomitant]
     Dosage: TAKE 30 MG BY MOUTH EVEYR MORNING BEFORE BREAKFAST
     Route: 048
  35. CIPRO [Concomitant]
     Dosage: TAKE  1TAB BY MOUTH TWICE DAILY
     Route: 048

REACTIONS (14)
  - ABDOMINAL PAIN [None]
  - ABNORMAL DREAMS [None]
  - AMBLYOPIA [None]
  - BLOOD POTASSIUM DECREASED [None]
  - DECREASED APPETITE [None]
  - FLIGHT OF IDEAS [None]
  - FLUID INTAKE REDUCED [None]
  - INTRAOCULAR PRESSURE TEST ABNORMAL [None]
  - LABORATORY TEST ABNORMAL [None]
  - NIGHT SWEATS [None]
  - TREMOR [None]
  - VISION BLURRED [None]
  - VISUAL FIELD DEFECT [None]
  - VISUAL IMPAIRMENT [None]
